FAERS Safety Report 9397715 (Version 4)
Quarter: 2013Q3

REPORT INFORMATION
  Report Type: Report from Study
  Country: CA (occurrence: CA)
  Receive Date: 20130712
  Receipt Date: 20130911
  Transmission Date: 20140515
  Serious: Yes (Hospitalization)
  Sender: FDA-Public Use
  Company Number: CA-ASTELLAS-2013EU005895

PATIENT
  Age: 76 Year
  Sex: Male
  Weight: 84.2 kg

DRUGS (27)
  1. ENZALUTAMIDE [Suspect]
     Indication: PROSTATE CANCER
     Dosage: 160 MG, UID/QD
     Route: 048
     Dates: start: 20121121, end: 20130522
  2. ALTACE [Concomitant]
     Indication: HYPERTENSION
     Dosage: 10 MG, UID/QD
     Route: 048
     Dates: start: 2002
  3. ALTACE [Concomitant]
     Dosage: 10 MG, PRN
     Route: 048
     Dates: start: 20130523, end: 20130525
  4. MULTIVITAMINS [Concomitant]
     Indication: ROUTINE HEALTH MAINTENANCE
     Dosage: 1000 MG, UID/QD
     Route: 048
     Dates: start: 1982
  5. ESTER C                            /00008001/ [Concomitant]
     Indication: ROUTINE HEALTH MAINTENANCE
     Dosage: 1000 MG, UID/QD
     Route: 048
     Dates: start: 2000
  6. VITAMIN D                          /00107901/ [Concomitant]
     Indication: ROUTINE HEALTH MAINTENANCE
     Dosage: 400 IU, UID/QD
     Route: 048
     Dates: start: 2000
  7. COENZYM Q10 [Concomitant]
     Indication: ROUTINE HEALTH MAINTENANCE
     Dosage: 30 MG, BID
     Route: 048
     Dates: start: 2002
  8. DOCUSATE SODIUM [Concomitant]
     Indication: CONSTIPATION
     Dosage: 100 MG, PRN
     Route: 048
     Dates: start: 2011
  9. DOCUSATE SODIUM [Concomitant]
     Dosage: 100 MG, BID
     Route: 048
     Dates: start: 20130523, end: 20130523
  10. ASPIRIN [Concomitant]
     Indication: DRUG THERAPY
     Dosage: 81 MG, UID/QD
     Route: 048
     Dates: start: 20130612
  11. ASPIRIN [Concomitant]
     Dosage: 81 MG, UID/QD
     Route: 048
     Dates: start: 1992
  12. TYLENOL                            /00020001/ [Concomitant]
     Indication: PAIN MANAGEMENT
     Dosage: 500 MG, PRN
     Route: 048
     Dates: start: 20130530
  13. TYLENOL                            /00020001/ [Concomitant]
     Dosage: 1000 MG, Q6 HOURS
     Route: 048
     Dates: start: 20130523, end: 20130525
  14. CIPROFLOXACIN [Concomitant]
     Indication: PROPHYLAXIS
     Dosage: 500 MG, UID/QD
     Route: 048
     Dates: start: 20130528, end: 20130603
  15. CIPROFLOXACIN [Concomitant]
     Dosage: 500 MG, UID/QD
     Route: 048
     Dates: start: 20130613, end: 20130615
  16. ONDANSETRON [Concomitant]
     Dosage: UNK
     Route: 042
     Dates: start: 20130523, end: 20130523
  17. HYDROMORPHONE [Concomitant]
     Dosage: 30 MG, PRN
     Route: 042
     Dates: start: 20130523, end: 20130523
  18. HYDROMORPHONE [Concomitant]
     Dosage: 0.5 MG, PRN
     Route: 042
     Dates: start: 20120523, end: 20130523
  19. HYDROMORPHONE [Concomitant]
     Dosage: 0.5 MG, UNKNOWN/D
     Route: 058
     Dates: start: 20130523, end: 20130523
  20. HYDROMORPHONE [Concomitant]
     Dosage: 2 MG, PRN
     Route: 048
     Dates: start: 20130523, end: 20130523
  21. AMPICILLIN [Concomitant]
     Dosage: 1 G, Q6 HOURS
     Route: 042
     Dates: start: 20130523, end: 20130526
  22. GENTAMYCIN                         /00047101/ [Concomitant]
     Dosage: 80 MG, UNKNOWN/D
     Route: 042
     Dates: start: 20130523, end: 20130526
  23. KETOROLAC [Concomitant]
     Dosage: UNK
     Route: 042
  24. MORPHINE [Concomitant]
     Dosage: 2 MG, UNKNOWN/D
     Route: 042
     Dates: start: 20130523, end: 20130525
  25. HEPARIN [Concomitant]
     Dosage: 5000 DF, Q12 HOURS
     Route: 058
     Dates: start: 20130523, end: 20130525
  26. OXYIR [Concomitant]
     Dosage: 5 MG, PRN
     Route: 048
     Dates: start: 20130524, end: 20130525
  27. POTASSIUM CHLORIDE [Concomitant]
     Dosage: 40 MEQ, UNKNOWN/D
     Route: 048
     Dates: start: 20130525, end: 20130525

REACTIONS (1)
  - Lymphocele [Recovered/Resolved]
